FAERS Safety Report 6582848-0 (Version None)
Quarter: 2010Q1

REPORT INFORMATION
  Report Type: 
  Country: None (occurrence: None)
  Receive Date: 20100203
  Receipt Date: 20100128
  Transmission Date: 20100710
  Serious: No
  Sender: FDA-Public Use
  Company Number: 491694

PATIENT
  Age: 58 Year
  Sex: Female
  Weight: 82 kg

DRUGS (3)
  1. DILTIAZEM HYDROCHLORIDE [Suspect]
     Indication: ATRIAL FIBRILLATION
     Dosage: 20MG, ONCE, INTRAVENOUS BOLUS
     Route: 040
     Dates: start: 20100127, end: 20100127
  2. (D5LRS) [Suspect]
     Dosage: INTRAVENOUS
     Route: 042
     Dates: start: 20100101, end: 20100101
  3. SODIUM CHLORIDE 0.9% INJECTION [Concomitant]

REACTIONS (5)
  - CHILLS [None]
  - DRUG INTERACTION [None]
  - INFUSION RELATED REACTION [None]
  - URTICARIA [None]
  - WRONG TECHNIQUE IN DRUG USAGE PROCESS [None]
